FAERS Safety Report 19051695 (Version 1)
Quarter: 2021Q1

REPORT INFORMATION
  Report Type: Spontaneous
  Country: US (occurrence: US)
  Receive Date: 20210324
  Receipt Date: 20210324
  Transmission Date: 20210420
  Serious: No
  Sender: FDA-Public Use
  Company Number: US-SA-2021SA098735

PATIENT
  Age: 59 Year
  Sex: Female

DRUGS (3)
  1. DUPIXENT [Suspect]
     Active Substance: DUPILUMAB
     Indication: SINUS POLYP DEGENERATION
     Dosage: 300 MG, QOW
     Route: 058
     Dates: start: 202005, end: 202011
  2. DUPIXENT [Suspect]
     Active Substance: DUPILUMAB
     Indication: NASAL POLYPS
  3. DUPIXENT [Suspect]
     Active Substance: DUPILUMAB
     Indication: RHINITIS ALLERGIC

REACTIONS (11)
  - Sinusitis [Unknown]
  - Sneezing [Unknown]
  - Product use in unapproved indication [Unknown]
  - Facial pain [Unknown]
  - Cough [Unknown]
  - Ear discomfort [Unknown]
  - Rhinorrhoea [Unknown]
  - Upper-airway cough syndrome [Unknown]
  - Condition aggravated [Unknown]
  - Malaise [Unknown]
  - Arthroscopic surgery [Unknown]

NARRATIVE: CASE EVENT DATE: 202005
